FAERS Safety Report 12218208 (Version 1)
Quarter: 2016Q1

REPORT INFORMATION
  Report Type: Spontaneous
  Country: FR (occurrence: FR)
  Receive Date: 20160329
  Receipt Date: 20160329
  Transmission Date: 20160526
  Serious: Yes (Death, Hospitalization)
  Sender: FDA-Public Use
  Company Number: FR-ASTRAZENECA-2016SE33396

PATIENT
  Age: 23193 Day
  Sex: Female

DRUGS (24)
  1. SOLUPRED [Concomitant]
     Active Substance: PREDNISOLONE
     Route: 048
     Dates: start: 20151024, end: 20151028
  2. METHYLPREDNISOLONE. [Concomitant]
     Active Substance: METHYLPREDNISOLONE
     Indication: CENTRAL NERVOUS SYSTEM LYMPHOMA
     Dosage: MYLAN
     Route: 042
     Dates: start: 20151025, end: 20151025
  3. TRANXENE T-TAB [Concomitant]
     Active Substance: CLORAZEPATE DIPOTASSIUM
  4. EMEND [Concomitant]
     Active Substance: APREPITANT
     Route: 048
     Dates: start: 20151105, end: 20151107
  5. MABTHERA [Concomitant]
     Active Substance: RITUXIMAB
     Indication: CENTRAL NERVOUS SYSTEM LYMPHOMA
     Route: 042
     Dates: start: 20151024, end: 20151024
  6. METHYLPREDNISOLONE. [Concomitant]
     Active Substance: METHYLPREDNISOLONE
     Indication: CENTRAL NERVOUS SYSTEM LYMPHOMA
     Route: 042
     Dates: start: 20151025, end: 20151025
  7. CALCIUM LEVOFOLINATE [Concomitant]
     Active Substance: LEVOLEUCOVORIN CALCIUM
     Route: 042
  8. SOLUPRED [Concomitant]
     Active Substance: PREDNISOLONE
     Route: 048
     Dates: end: 20151023
  9. METHOTREXATE [Suspect]
     Active Substance: METHOTREXATE
     Indication: CENTRAL NERVOUS SYSTEM LYMPHOMA
     Route: 042
     Dates: start: 20151024
  10. NATULAN [Concomitant]
     Active Substance: PROCARBAZINE HYDROCHLORIDE
     Route: 048
     Dates: start: 20151024, end: 20151024
  11. INEXIUM [Suspect]
     Active Substance: ESOMEPRAZOLE
     Route: 048
  12. METHOTREXATE [Suspect]
     Active Substance: METHOTREXATE
     Indication: CENTRAL NERVOUS SYSTEM LYMPHOMA
     Dosage: MYLAN
     Route: 042
     Dates: start: 20151024
  13. SOLUPRED [Concomitant]
     Active Substance: PREDNISOLONE
     Route: 048
     Dates: start: 20151029, end: 20151102
  14. SOLUPRED [Concomitant]
     Active Substance: PREDNISOLONE
     Route: 048
     Dates: start: 20151103
  15. LOVENOX [Concomitant]
     Active Substance: ENOXAPARIN SODIUM
  16. TERCIAN [Concomitant]
     Active Substance: CYAMEMAZINE
  17. NATULAN [Concomitant]
     Active Substance: PROCARBAZINE HYDROCHLORIDE
     Route: 048
     Dates: start: 20151030, end: 20151030
  18. VINCRISTINE [Concomitant]
     Active Substance: VINCRISTINE
     Indication: CENTRAL NERVOUS SYSTEM LYMPHOMA
     Route: 042
  19. GLICLAZIDE [Concomitant]
     Active Substance: GLICLAZIDE
  20. ONDANSETRON [Concomitant]
     Active Substance: ONDANSETRON
  21. LASILIX [Concomitant]
     Active Substance: FUROSEMIDE
  22. METFORMINE [Concomitant]
     Active Substance: METFORMIN HYDROCHLORIDE
  23. IMOVANE [Concomitant]
     Active Substance: ZOPICLONE
  24. ZYPREXA [Concomitant]
     Active Substance: OLANZAPINE

REACTIONS (5)
  - Weight increased [Unknown]
  - Overdose [Recovered/Resolved]
  - Renal failure [Not Recovered/Not Resolved]
  - Acute respiratory distress syndrome [Fatal]
  - Cardiogenic shock [Fatal]

NARRATIVE: CASE EVENT DATE: 201511
